FAERS Safety Report 4467157-8 (Version None)
Quarter: 2004Q4

REPORT INFORMATION
  Report Type: 
  Country: None (occurrence: None)
  Receive Date: 20041004
  Receipt Date: 20041004
  Transmission Date: 20050328
  Serious: Yes (Hospitalization)
  Sender: FDA-Public Use
  Company Number: None

PATIENT
  Age: 56 Year
  Sex: Male
  Weight: 163.2949 kg

DRUGS (3)
  1. VANCOMYCIN -ABBOTT 1 GM [Suspect]
     Indication: OPEN WOUND
     Dosage: 1 GM Q 12 H IV
     Route: 042
     Dates: start: 20040820, end: 20040929
  2. VANCOMYCIN -ABBOTT 1 GM [Suspect]
     Indication: WOUND INFECTION
     Dosage: 1 GM Q 12 H IV
     Route: 042
     Dates: start: 20040820, end: 20040929
  3. VANCOMYCIN -APP 10 GM [Suspect]

REACTIONS (2)
  - CHILLS [None]
  - PYREXIA [None]
